FAERS Safety Report 7379835-1 (Version None)
Quarter: 2011Q1

REPORT INFORMATION
  Report Type: 
  Country: None (occurrence: None)
  Receive Date: 20110318
  Receipt Date: 20110310
  Transmission Date: 20110831
  Serious: Yes (Death)
  Sender: FDA-Public Use
  Company Number: 114210

PATIENT
  Age: 30 Year
  Sex: Female

DRUGS (1)
  1. BUPRENORPHINE HCL [Suspect]
     Indication: DEPRESSION

REACTIONS (4)
  - SUICIDAL IDEATION [None]
  - ACUTE PULMONARY OEDEMA [None]
  - OVERDOSE [None]
  - LOSS OF CONSCIOUSNESS [None]
